FAERS Safety Report 5804371-0 (Version None)
Quarter: 2008Q3

REPORT INFORMATION
  Report Type: 
  Country: None (occurrence: None)
  Receive Date: 20080709
  Receipt Date: 20080313
  Transmission Date: 20090109
  Serious: No
  Sender: FDA-Public Use
  Company Number: US-BAYER-200817193NA

PATIENT
  Sex: Female
  Weight: 100 kg

DRUGS (4)
  1. MIRENA [Suspect]
     Indication: CONTRACEPTION
     Route: 015
     Dates: start: 20080101
  2. PROZAC [Concomitant]
  3. ATENOLOL [Concomitant]
  4. MULTI-VITAMINS [Concomitant]

REACTIONS (2)
  - DYSPAREUNIA [None]
  - VAGINAL HAEMORRHAGE [None]
